FAERS Safety Report 5781659-3 (Version None)
Quarter: 2008Q2

REPORT INFORMATION
  Report Type: 
  Country: None (occurrence: None)
  Receive Date: 20080623
  Receipt Date: 20080611
  Transmission Date: 20081010
  Serious: Yes (Other)
  Sender: FDA-Public Use
  Company Number: BR-ROCHE-570266

PATIENT
  Age: 12 Month
  Sex: Male
  Weight: 11 kg

DRUGS (3)
  1. ROCEPHIN [Suspect]
     Indication: ROTAVIRUS INFECTION
     Route: 030
     Dates: start: 20080603, end: 20080607
  2. DRAMIN [Concomitant]
  3. DIPYRONE [Concomitant]

REACTIONS (1)
  - PSYCHOMOTOR HYPERACTIVITY [None]
